FAERS Safety Report 5295613-1 (Version None)
Quarter: 2007Q1

REPORT INFORMATION
  Report Type: 
  Country: None (occurrence: None)
  Receive Date: 20070201
  Receipt Date: 20061014
  Transmission Date: 20070707
  Serious: No
  Sender: FDA-Public Use
  Company Number: 2006PV023209

PATIENT
  Age: 53 Year
  Sex: Female
  Weight: 68.9467 kg

DRUGS (4)
  1. BYETTA [Suspect]
     Indication: DIABETES MELLITUS NON-INSULIN-DEPENDENT
     Dosage: 10; 5 MCG; BID; SC
     Route: 058
     Dates: start: 20060903, end: 20060930
  2. BYETTA [Suspect]
     Indication: DIABETES MELLITUS NON-INSULIN-DEPENDENT
     Dosage: 10; 5 MCG; BID; SC
     Route: 058
     Dates: start: 20061003, end: 20061011
  3. GLYBURIDE [Concomitant]
  4. GLUCOVANCE [Concomitant]

REACTIONS (3)
  - NAUSEA [None]
  - VOMITING [None]
  - WEIGHT DECREASED [None]
